FAERS Safety Report 23390348 (Version 1)
Quarter: 2024Q1

REPORT INFORMATION
  Report Type: Spontaneous
  Country: FR (occurrence: FR)
  Receive Date: 20240111
  Receipt Date: 20240111
  Transmission Date: 20240410
  Serious: Yes (Hospitalization)
  Sender: FDA-Public Use
  Company Number: FR-AFSSAPS-AM2023000809

PATIENT
  Age: 57 Year
  Sex: Female
  Weight: 85 kg

DRUGS (3)
  1. AZITHROMYCIN [Suspect]
     Active Substance: AZITHROMYCIN
     Indication: Bronchitis
     Dosage: UNK
     Route: 048
     Dates: start: 20220121, end: 20220127
  2. BETAMETHASONE [Suspect]
     Active Substance: BETAMETHASONE\BETAMETHASONE DIPROPIONATE
     Indication: Bronchitis
     Dosage: UNK
     Route: 048
     Dates: start: 20220121, end: 20220125
  3. CAFFEINE\ERGOTAMINE TARTRATE [Suspect]
     Active Substance: CAFFEINE\ERGOTAMINE TARTRATE
     Indication: Migraine
     Dosage: UNK
     Route: 048
     Dates: end: 202111

REACTIONS (2)
  - Superior mesenteric artery dissection [Recovered/Resolved with Sequelae]
  - Renal infarct [Recovered/Resolved with Sequelae]

NARRATIVE: CASE EVENT DATE: 20220203
